FAERS Safety Report 5468598-2 (Version None)
Quarter: 2007Q3

REPORT INFORMATION
  Report Type: 
  Country: None (occurrence: None)
  Receive Date: 20070926
  Receipt Date: 20070920
  Transmission Date: 20080115
  Serious: Yes (Hospitalization)
  Sender: FDA-Public Use
  Company Number: PH-ROCHE-519809

PATIENT

DRUGS (1)
  1. XENICAL [Suspect]
     Indication: OBESITY
     Route: 048

REACTIONS (1)
  - NEPHROPATHY [None]
